FAERS Safety Report 8408264-4 (Version None)
Quarter: 2012Q2

REPORT INFORMATION
  Report Type: 
  Country: None (occurrence: None)
  Receive Date: 20120531
  Receipt Date: 20120531
  Transmission Date: 20120825
  Serious: Yes (Other)
  Sender: FDA-Public Use
  Company Number: None

PATIENT
  Sex: Female

DRUGS (1)
  1. COPAXONE [Suspect]
     Indication: MULTIPLE SCLEROSIS
     Dosage: COPAXONE 20 MG EVERY DAY SUB Q
     Route: 058
     Dates: start: 20120218, end: 20120522

REACTIONS (3)
  - VENOUS INJURY [None]
  - HYPERSENSITIVITY [None]
  - URTICARIA [None]
